FAERS Safety Report 25035182 (Version 2)
Quarter: 2025Q2

REPORT INFORMATION
  Report Type: Spontaneous
  Country: FR (occurrence: FR)
  Receive Date: 20250304
  Receipt Date: 20250521
  Transmission Date: 20250717
  Serious: Yes (Death, Hospitalization, Other)
  Sender: RANBAXY
  Company Number: FR-AFSSAPS-TO2025000058

PATIENT
  Age: 70 Year
  Sex: Male

DRUGS (5)
  1. OXALIPLATIN [Suspect]
     Active Substance: OXALIPLATIN
     Indication: Colon cancer
     Route: 040
     Dates: start: 20250106, end: 20250106
  2. FLUOROURACIL [Suspect]
     Active Substance: FLUOROURACIL
     Indication: Colon cancer
     Route: 040
     Dates: start: 20250106, end: 20250106
  3. ELIQUIS [Concomitant]
     Active Substance: APIXABAN
     Indication: Product used for unknown indication
     Route: 065
  4. BISOPROLOL [Concomitant]
     Active Substance: BISOPROLOL
     Indication: Product used for unknown indication
     Route: 065
  5. FLECAINIDE [Concomitant]
     Active Substance: FLECAINIDE
     Indication: Product used for unknown indication
     Route: 065

REACTIONS (4)
  - Intestinal ischaemia [Fatal]
  - Oesophageal stenosis [Fatal]
  - Haematemesis [Fatal]
  - Gastric ischaemia [Fatal]

NARRATIVE: CASE EVENT DATE: 20250106
